FAERS Safety Report 7957460-9 (Version None)
Quarter: 2011Q4

REPORT INFORMATION
  Report Type: 
  Country: None (occurrence: None)
  Receive Date: 20111205
  Receipt Date: 20111125
  Transmission Date: 20120403
  Serious: Yes (Other)
  Sender: FDA-Public Use
  Company Number: FR-SANOFI-AVENTIS-2011SA077722

PATIENT
  Age: 60 Year
  Sex: Female
  Weight: 92 kg

DRUGS (4)
  1. ATORVASTATIN CALCIUM [Suspect]
     Route: 048
  2. STRONTIUM RANELATE [Suspect]
     Route: 048
     Dates: start: 20070101, end: 20110601
  3. LEVOTHYROXINE SODIUM [Suspect]
     Route: 048
  4. INDAPAMIDE [Suspect]
     Route: 048

REACTIONS (2)
  - LYMPHOCYTOSIS [None]
  - LEUKOCYTOSIS [None]
